FAERS Safety Report 13329345 (Version 6)
Quarter: 2017Q2

REPORT INFORMATION
  Report Type: Spontaneous
  Country: US (occurrence: US)
  Receive Date: 20170313
  Receipt Date: 20170526
  Transmission Date: 20170830
  Serious: Yes (Other)
  Sender: FDA-Public Use
  Company Number: US-009507513-1702USA007088

PATIENT
  Age: 75 Year
  Sex: Female
  Weight: 116 kg

DRUGS (19)
  1. CARBIDOPA. [Suspect]
     Active Substance: CARBIDOPA
     Dosage: 1 TABLET (25MG) BY MOUTH 3 TIMES A DAY
     Route: 048
  2. NORTHERA [Suspect]
     Active Substance: DROXIDOPA
     Dosage: 300 MG, THREE TIMES DAILY
     Dates: start: 2017, end: 2017
  3. ATIVAN [Concomitant]
     Active Substance: LORAZEPAM
     Dosage: 0.5 MG BY MOUTH EVERY 4 HOURS AS NEEDED
     Route: 048
  4. RELPAX [Concomitant]
     Active Substance: ELETRIPTAN HYDROBROMIDE
     Dosage: ONE TABLET, REPEAT IN 4-6 HOURS IF NEEDED. MAXIMUM 2 DAYS PER WEEK
  5. FLORINEF ACETATE [Concomitant]
     Active Substance: FLUDROCORTISONE ACETATE
     Dosage: 0.1 MG BY MOUTH DAILY
     Route: 048
  6. CHONDROITIN SULFATE SODIUM (+) GLUCOSAMINE SULFATE [Concomitant]
  7. OMEGA-3 ACIDS [Concomitant]
     Active Substance: OMEGA-3 FATTY ACIDS
     Dosage: TAKE 1200MG
     Route: 048
  8. CHOLECALCIFEROL [Concomitant]
     Active Substance: CHOLECALCIFEROL
     Dosage: STRENGTH: 1000 UNITS
     Route: 048
  9. LACTOBACILLUS ACIDOPHILUS [Concomitant]
     Active Substance: LACTOBACILLUS ACIDOPHILUS
     Route: 048
  10. ZOFRAN [Concomitant]
     Active Substance: ONDANSETRON HYDROCHLORIDE
     Dosage: 1 TABLET BY MOUTH EVERY 4 TO 6 HOURS AS NEEDED
     Route: 048
  11. SINEMET [Suspect]
     Active Substance: CARBIDOPA\LEVODOPA
     Indication: PARKINSON^S DISEASE
     Dosage: 1 TABLET (25/100MG) BY MOUTH 3 TIMES A DAY
     Route: 048
     Dates: start: 20161012, end: 2016
  12. CARBIDOPA. [Suspect]
     Active Substance: CARBIDOPA
     Dosage: 1 TABLET (25MG) BY MOUTH 2 TIMES A DAY
     Route: 048
  13. SINEMET [Suspect]
     Active Substance: CARBIDOPA\LEVODOPA
     Dosage: 1 TABLET (25/100MG) BY MOUTH 2 TIMES A DAY
     Route: 048
  14. SYNTHROID [Concomitant]
     Active Substance: LEVOTHYROXINE SODIUM
     Dosage: 75 MICROGRAM, UNK
     Route: 048
  15. ELA-MAX [Concomitant]
     Dosage: AS NEEDED, 30 G
     Route: 061
  16. NORTHERA [Suspect]
     Active Substance: DROXIDOPA
     Dosage: UNK
  17. MIDODRINE HYDROCHLORIDE. [Suspect]
     Active Substance: MIDODRINE HYDROCHLORIDE
     Indication: ORTHOSTATIC HYPOTENSION
     Dosage: 5 MG, QD
     Route: 048
     Dates: start: 201609
  18. NORTHERA [Suspect]
     Active Substance: DROXIDOPA
     Dosage: 200 MG, TWICE DAILY
     Dates: start: 2017
  19. CITRATE OF MAGNESIUM [Concomitant]
     Active Substance: MAGNESIUM CITRATE
     Dosage: TAKE 500 MG BY MOUTH
     Route: 048

REACTIONS (20)
  - Blood pressure decreased [Unknown]
  - Fatigue [Recovering/Resolving]
  - Constipation [Unknown]
  - General physical condition abnormal [Unknown]
  - Depression [Unknown]
  - Tremor [Not Recovered/Not Resolved]
  - Abdominal pain upper [Recovering/Resolving]
  - Dizziness [Unknown]
  - Somnolence [Unknown]
  - Myocardial infarction [Unknown]
  - Blood pressure abnormal [Unknown]
  - Nausea [Recovering/Resolving]
  - Palpitations [Unknown]
  - Epigastric discomfort [Recovering/Resolving]
  - Quality of life decreased [Unknown]
  - Orthostatic intolerance [Unknown]
  - Dyspnoea [Unknown]
  - Abdominal discomfort [Unknown]
  - Balance disorder [Not Recovered/Not Resolved]
  - Insomnia [Recovered/Resolved]

NARRATIVE: CASE EVENT DATE: 201610
